FAERS Safety Report 25945131 (Version 1)
Quarter: 2025Q4

REPORT INFORMATION
  Report Type: Spontaneous
  Country: US (occurrence: US)
  Receive Date: 20251021
  Receipt Date: 20251021
  Transmission Date: 20260117
  Serious: No
  Sender: DR REDDYS
  Company Number: US-DRL-USA-USA/2025/10/015523

PATIENT
  Age: 80 Year
  Sex: Female
  Weight: 72 kg

DRUGS (1)
  1. FLUOROURACIL [Suspect]
     Active Substance: FLUOROURACIL
     Indication: Precancerous cells present
     Dosage: PUT ON AFFECTED AREAS TWO TIMES A DAY, MORNING AND NIGHT, FOR TWO WEEKS.
     Dates: start: 20250924

REACTIONS (2)
  - Perioral dermatitis [Not Recovered/Not Resolved]
  - Skin discolouration [Not Recovered/Not Resolved]

NARRATIVE: CASE EVENT DATE: 20250924
